FAERS Safety Report 23557291 (Version 1)
Quarter: 2024Q1

REPORT INFORMATION
  Report Type: Spontaneous
  Country: CN (occurrence: CN)
  Receive Date: 20240223
  Receipt Date: 20240223
  Transmission Date: 20240409
  Serious: Yes (Life-Threatening, Hospitalization, Other)
  Sender: FDA-Public Use
  Company Number: CN-862174955-ML2024-01091

PATIENT
  Age: 23 Year
  Sex: Male

DRUGS (3)
  1. OLMESARTAN MEDOXOMIL [Suspect]
     Active Substance: OLMESARTAN MEDOXOMIL
     Indication: Hypertension
     Dosage: 14 OLMESARTAN TABLETS
  2. NIFEDIPINE [Suspect]
     Active Substance: NIFEDIPINE
     Indication: Hypertension
     Dosage: 60 NIFEDIPINE TABLETS
  3. CLONIDINE [Suspect]
     Active Substance: CLONIDINE
     Indication: Hypertension
     Dosage: 50 CLONIDINE TABLETS

REACTIONS (4)
  - Gastrointestinal necrosis [Unknown]
  - Splanchnic hypoperfusion [Unknown]
  - Hypotension [Unknown]
  - Intentional overdose [Unknown]
